FAERS Safety Report 16006374 (Version 7)
Quarter: 2020Q1

REPORT INFORMATION
  Report Type: Spontaneous
  Country: US (occurrence: US)
  Receive Date: 20190225
  Receipt Date: 20200227
  Transmission Date: 20200409
  Serious: No
  Sender: FDA-Public Use
  Company Number: US-PFIZER INC-2017249477

PATIENT
  Age: 9 Year
  Sex: Female
  Weight: 24 kg

DRUGS (9)
  1. STRATTERA [Concomitant]
     Active Substance: ATOMOXETINE HYDROCHLORIDE
     Indication: OPPOSITIONAL DEFIANT DISORDER
     Dosage: 13 ML, DAILY
     Dates: start: 2013
  2. NITROFURANTOIN. [Concomitant]
     Active Substance: NITROFURANTOIN
     Dosage: 50 MG, ONCE DAILY
     Dates: start: 2011
  3. NITROFURANTOIN. [Concomitant]
     Active Substance: NITROFURANTOIN
     Indication: BLADDER DISORDER
     Dosage: UNK , ONCE DAILY (IN EVENING)
  4. GENOTROPIN [Suspect]
     Active Substance: SOMATROPIN
     Indication: GROWTH HORMONE DEFICIENCY
     Dosage: 7 ML, ONCE DAILY (AT NIGHT)
     Dates: start: 201610
  5. GENOTROPIN [Suspect]
     Active Substance: SOMATROPIN
     Dosage: 0.8 MG, UNK
     Dates: start: 2017
  6. GENOTROPIN [Suspect]
     Active Substance: SOMATROPIN
     Dosage: 8 MG, DAILY
  7. OXYBUTIN [Concomitant]
     Active Substance: OXYBUTYNIN
     Dosage: 5 MG, THRICE DAILY
     Dates: start: 2008
  8. GENOTROPIN [Suspect]
     Active Substance: SOMATROPIN
     Dosage: 0.8 MG, DAILY
     Dates: start: 20161101
  9. OXYBUTIN [Concomitant]
     Active Substance: OXYBUTYNIN
     Indication: BLADDER DISORDER
     Dosage: UNK, ONCE DAILY (IN EVENING)

REACTIONS (4)
  - Blood urea nitrogen/creatinine ratio increased [Unknown]
  - Drug dose omission by device [Unknown]
  - Overdose [Unknown]
  - Device issue [Unknown]

NARRATIVE: CASE EVENT DATE: 201610
